FAERS Safety Report 20390154 (Version 1)
Quarter: 2022Q1

REPORT INFORMATION
  Report Type: Report from Study
  Country: US (occurrence: US)
  Receive Date: 20220128
  Receipt Date: 20220128
  Transmission Date: 20220423
  Serious: Yes (Hospitalization, Other)
  Sender: FDA-Public Use
  Company Number: US-Ipsen Biopharmaceuticals, Inc.-2022-01660

PATIENT
  Age: 74 Year
  Sex: Male

DRUGS (1)
  1. SOMATULINE DEPOT [Suspect]
     Active Substance: LANREOTIDE ACETATE
     Indication: Carcinoid tumour of the duodenum
     Dosage: 1 SYRINGE
     Route: 058
     Dates: start: 202104

REACTIONS (4)
  - Malignant melanoma stage IV [Not Recovered/Not Resolved]
  - Dehydration [Unknown]
  - Blood electrolytes decreased [Unknown]
  - Fatigue [Unknown]
